FAERS Safety Report 8044207 (Version 2)
Quarter: 2014Q3

REPORT INFORMATION
  Report Type: Spontaneous
  Country: US (occurrence: US)
  Receive Date: 20110719
  Receipt Date: 20140926
  Transmission Date: 20150326
  Serious: Yes (Hospitalization, Congenital Anomaly, Other)
  Sender: FDA-Public Use
  Company Number: US-PFIZER INC-2011158478

PATIENT
  Sex: Male

DRUGS (6)
  1. CLONIDINE. [Concomitant]
     Active Substance: CLONIDINE
     Dosage: 0.2 MG, 2X/DAY
     Route: 064
  2. LISINOPRIL AND HYDROCHLOROTHIAZIDE [Concomitant]
     Active Substance: HYDROCHLOROTHIAZIDE\LISINOPRIL
     Dosage: 20/12.5 MG EVERY DAY
     Route: 064
  3. EFFEXOR XR [Suspect]
     Active Substance: VENLAFAXINE HYDROCHLORIDE
     Indication: DEPRESSION
     Dosage: 150 MG EVERY DAY
     Route: 064
     Dates: start: 2007
  4. ZYPREXA [Concomitant]
     Active Substance: OLANZAPINE
     Indication: DEPRESSION
     Dosage: 10 MG EVERY NIGHT
     Route: 064
  5. NOVOLOG [Concomitant]
     Active Substance: INSULIN ASPART
     Indication: HYPERGLYCAEMIA
     Dosage: UNK
     Route: 064
     Dates: start: 20071127
  6. METHYLDOPA. [Concomitant]
     Active Substance: METHYLDOPA
     Indication: HYPERTENSION
     Dosage: 500 MG, 3X/DAY
     Route: 064

REACTIONS (6)
  - Talipes [Recovered/Resolved]
  - Phimosis [Unknown]
  - Maternal exposure timing unspecified [Unknown]
  - Perineal fistula [Unknown]
  - Foetal arrhythmia [Unknown]
  - Anal atresia [Unknown]

NARRATIVE: CASE EVENT DATE: 20080128
